FAERS Safety Report 5135001-1 (Version None)
Quarter: 2006Q4

REPORT INFORMATION
  Report Type: 
  Country: None (occurrence: None)
  Receive Date: 20060831
  Receipt Date: 20060502
  Transmission Date: 20070319
  Serious: No
  Sender: FDA-Public Use
  Company Number: 2006-BP-01811BP

PATIENT
  Age: 51 Year
  Sex: Male

DRUGS (7)
  1. SPIRIVA [Suspect]
     Indication: DYSPNOEA
     Dosage: 18 MCG (18 MCG,1 CAPSULE),IH
     Route: 055
     Dates: start: 20051201
  2. CALAN [Concomitant]
  3. AVANDIA [Concomitant]
  4. KLOR-CON [Concomitant]
  5. ARIMIDEX [Concomitant]
  6. GLUCOVANCE [Concomitant]
  7. ZESTORIL (LISINOPRIL) [Concomitant]

REACTIONS (1)
  - AGEUSIA [None]
